FAERS Safety Report 7204695 (Version 25)
Quarter: 2014Q2

REPORT INFORMATION
  Report Type: Spontaneous
  Country: US (occurrence: US)
  Receive Date: 20091208
  Receipt Date: 20140521
  Transmission Date: 20141212
  Serious: Yes (Other)
  Sender: FDA-Public Use
  Company Number: PHEH2009US16946

PATIENT
  Age: 68 Year
  Sex: Female
  Weight: 63.49 kg

DRUGS (9)
  1. ZOMETA [Suspect]
     Dosage: 4 MG, QMO
     Route: 042
     Dates: start: 2001, end: 200701
  2. AREDIA [Suspect]
     Dosage: 90 MG,
     Route: 042
  3. FEMARA [Concomitant]
  4. GABAPENTIN [Concomitant]
  5. WARFARIN [Concomitant]
  6. FORTICAL /KOR/ [Concomitant]
  7. FLAGYL [Concomitant]
  8. CIPROFLOXACIN [Concomitant]
  9. MIACALCIN [Concomitant]

REACTIONS (119)
  - Osteonecrosis of jaw [Unknown]
  - General physical health deterioration [Unknown]
  - Pain [Unknown]
  - Anxiety [Unknown]
  - Anhedonia [Unknown]
  - Venous thrombosis [Unknown]
  - Intervertebral disc degeneration [Unknown]
  - Spinal osteoarthritis [Unknown]
  - Thyroid neoplasm [Unknown]
  - Metastases to spine [Unknown]
  - Cardiac murmur [Unknown]
  - Carotid bruit [Unknown]
  - Goitre [Unknown]
  - Cerumen impaction [Unknown]
  - Carotid artery stenosis [Unknown]
  - Nystagmus [Unknown]
  - Bronchitis [Unknown]
  - Diverticulum [Unknown]
  - Diverticulitis [Unknown]
  - Large intestine polyp [Unknown]
  - Haemorrhoids [Unknown]
  - Musculoskeletal pain [Unknown]
  - Osteoarthritis [Unknown]
  - Osteoporosis [Unknown]
  - Vision blurred [Unknown]
  - Vertigo [Unknown]
  - Tinnitus [Unknown]
  - Osteopenia [Unknown]
  - Lumbar spinal stenosis [Unknown]
  - Blood cholesterol increased [Unknown]
  - Palpitations [Unknown]
  - Tooth disorder [Unknown]
  - Exposed bone in jaw [Unknown]
  - Aortic valve sclerosis [Unknown]
  - Heart valve incompetence [Unknown]
  - Asthma [Unknown]
  - Lymphadenopathy [Unknown]
  - Primary sequestrum [Unknown]
  - Diabetes mellitus [Unknown]
  - QRS axis abnormal [Unknown]
  - Neuropathy peripheral [Unknown]
  - Dizziness [Unknown]
  - Blood pressure increased [Unknown]
  - Basal cell carcinoma [Unknown]
  - Skin lesion [Unknown]
  - Cataract [Unknown]
  - Colon adenoma [Unknown]
  - Hyperlipidaemia [Unknown]
  - Back pain [Unknown]
  - Skin cancer [Unknown]
  - Infection [Unknown]
  - Herpes zoster [Unknown]
  - Blindness [Unknown]
  - Dyspnoea [Unknown]
  - Anaemia [Unknown]
  - Malignant melanoma [Unknown]
  - Vascular calcification [Unknown]
  - Vertebral foraminal stenosis [Unknown]
  - Renal cyst [Unknown]
  - Osteosclerosis [Unknown]
  - Thrombosis [Unknown]
  - Eyelid oedema [Unknown]
  - Ophthalmic herpes zoster [Unknown]
  - Kyphosis [Unknown]
  - Sinusitis [Unknown]
  - Dysphagia [Recovering/Resolving]
  - Pulmonary granuloma [Unknown]
  - Pulmonary calcification [Unknown]
  - Pulmonary fibrosis [Unknown]
  - Eustachian tube dysfunction [Unknown]
  - Deafness [Unknown]
  - Dysphonia [Recovering/Resolving]
  - Tympanic membrane perforation [Unknown]
  - Upper-airway cough syndrome [Recovering/Resolving]
  - Nasal septum deviation [Unknown]
  - Eye pruritus [Unknown]
  - Contusion [Unknown]
  - Otitis externa [Unknown]
  - Arthralgia [Unknown]
  - Arteriosclerosis [Unknown]
  - Embolism [Unknown]
  - Intervertebral disc protrusion [Unknown]
  - Pericardial effusion [Unknown]
  - Mitral valve calcification [Unknown]
  - Mitral valve incompetence [Unknown]
  - Tricuspid valve incompetence [Unknown]
  - Hypertension [Unknown]
  - Essential hypertension [Unknown]
  - Lumbar radiculopathy [Unknown]
  - Deep vein thrombosis [Unknown]
  - Pulmonary valve incompetence [Unknown]
  - Fatigue [Unknown]
  - Constipation [Unknown]
  - Cerebral atrophy [Unknown]
  - Cerebral ischaemia [Unknown]
  - Ischiorectal hernia [Unknown]
  - Emphysema [Unknown]
  - Intervertebral disc space narrowing [Unknown]
  - Arthritis [Unknown]
  - Depression [Unknown]
  - Ear infection [Unknown]
  - Dysuria [Unknown]
  - Chest pain [Unknown]
  - Headache [Unknown]
  - Gastric mucosa erythema [Unknown]
  - Dyspepsia [Unknown]
  - Oropharyngeal pain [Unknown]
  - Vitamin D deficiency [Unknown]
  - Haemorrhagic disorder [Unknown]
  - Syncope [Unknown]
  - Atelectasis [Unknown]
  - Pyrexia [Unknown]
  - Nasal congestion [Unknown]
  - Temperature intolerance [Unknown]
  - Exostosis [Unknown]
  - Osteolysis [Unknown]
  - Pleural fibrosis [Unknown]
  - Skin hypertrophy [Unknown]
  - Breast disorder [Unknown]
